FAERS Safety Report 8503921-3 (Version None)
Quarter: 2012Q3

REPORT INFORMATION
  Report Type: 
  Country: None (occurrence: None)
  Receive Date: 20120702
  Receipt Date: 20120622
  Transmission Date: 20120928
  Serious: No
  Sender: FDA-Public Use
  Company Number: AXC-2012-000257

PATIENT
  Age: 48 Year
  Sex: Male

DRUGS (2)
  1. NITROGLYCERIN [Suspect]
     Indication: ANAL FISSURE
     Dosage: TOPICAL, TOPICAL
     Route: 061
     Dates: start: 20120519, end: 20120523
  2. NITROGLYCERIN [Suspect]
     Indication: ANAL FISSURE
     Dosage: TOPICAL, TOPICAL
     Route: 061
     Dates: start: 20120513, end: 20120518

REACTIONS (3)
  - PYREXIA [None]
  - HEADACHE [None]
  - ALANINE AMINOTRANSFERASE INCREASED [None]
